FAERS Safety Report 25388488 (Version 2)
Quarter: 2025Q3

REPORT INFORMATION
  Report Type: Spontaneous
  Country: EU (occurrence: EU)
  Receive Date: 20250603
  Receipt Date: 20250803
  Transmission Date: 20251020
  Serious: Yes (Other)
  Sender: ALEXION PHARMACEUTICALS
  Company Number: EU-ASTRAZENECA-202505EEA022362ES

PATIENT
  Age: 69 Year
  Sex: Female

DRUGS (11)
  1. FULVESTRANT [Suspect]
     Active Substance: FULVESTRANT
     Indication: Breast cancer stage II
     Route: 065
  2. FULVESTRANT [Suspect]
     Active Substance: FULVESTRANT
     Route: 065
  3. PALBOCICLIB [Suspect]
     Active Substance: PALBOCICLIB
     Indication: Breast cancer stage II
     Route: 065
  4. PALBOCICLIB [Suspect]
     Active Substance: PALBOCICLIB
     Dosage: 100 MILLIGRAM, QD
     Route: 065
  5. RIBOCICLIB [Suspect]
     Active Substance: RIBOCICLIB
     Indication: Breast cancer stage II
     Dosage: 400 MILLIGRAM, QD
     Route: 065
  6. RIBOCICLIB [Suspect]
     Active Substance: RIBOCICLIB
     Dosage: 200 MILLIGRAM, QD
     Route: 065
  7. DEXAMETHASONE [Concomitant]
     Active Substance: DEXAMETHASONE
  8. CAPECITABINE [Concomitant]
     Active Substance: CAPECITABINE
  9. ERIBULIN [Concomitant]
     Active Substance: ERIBULIN
  10. CARBOPLATIN [Concomitant]
     Active Substance: CARBOPLATIN
  11. BEVACIZUMAB [Concomitant]
     Active Substance: BEVACIZUMAB

REACTIONS (6)
  - Malignant neoplasm progression [Unknown]
  - Metastases to lung [Unknown]
  - Neutropenia [Unknown]
  - Skin exfoliation [Unknown]
  - Dermatitis [Unknown]
  - Pruritus [Unknown]
